FAERS Safety Report 7007432-6 (Version None)
Quarter: 2010Q3

REPORT INFORMATION
  Report Type: 
  Country: None (occurrence: None)
  Receive Date: 20100914
  Receipt Date: 20100909
  Transmission Date: 20110219
  Serious: Yes (Hospitalization, Other)
  Sender: FDA-Public Use
  Company Number: 2010SP006052

PATIENT
  Age: 24 Year
  Sex: Female
  Weight: 117.9352 kg

DRUGS (3)
  1. NUVARING [Suspect]
     Indication: CONTRACEPTION
     Dosage: 1 DF QM, VAG
     Route: 067
     Dates: start: 20080428, end: 20081002
  2. ZOLOFT [Concomitant]
  3. ATIVAN [Concomitant]

REACTIONS (14)
  - ABDOMINAL PAIN [None]
  - ANXIETY [None]
  - CHEST PAIN [None]
  - CULTURE URINE POSITIVE [None]
  - DYSURIA [None]
  - FLANK PAIN [None]
  - KIDNEY INFECTION [None]
  - LUNG INFILTRATION [None]
  - NEPHROLITHIASIS [None]
  - OVARIAN CYST [None]
  - PLEURAL EFFUSION [None]
  - PULMONARY EMBOLISM [None]
  - PULMONARY INFARCTION [None]
  - THROMBOPHLEBITIS SUPERFICIAL [None]
